FAERS Safety Report 7918181-1 (Version None)
Quarter: 2011Q4

REPORT INFORMATION
  Report Type: 
  Country: None (occurrence: None)
  Receive Date: 20111114
  Receipt Date: 20111107
  Transmission Date: 20120403
  Serious: Yes (Hospitalization)
  Sender: FDA-Public Use
  Company Number: AUR-APL-2011-05734

PATIENT
  Age: 41 Year
  Sex: Male

DRUGS (8)
  1. LAMOTRIGINE [Suspect]
     Indication: PRODUCT USED FOR UNKNOWN INDICATION
     Dosage: (100 MG), ORAL
     Route: 048
     Dates: start: 20100601
  2. CARBAMAZEPINE [Suspect]
     Indication: PRODUCT USED FOR UNKNOWN INDICATION
     Dosage: (200 MG), ORAL
     Route: 048
     Dates: start: 20090301
  3. LORAZEPAM [Suspect]
     Indication: PRODUCT USED FOR UNKNOWN INDICATION
     Dosage: (1 MG), ORAL
     Route: 048
     Dates: start: 20100601
  4. THIORIDAZINE HCL [Suspect]
     Indication: PRODUCT USED FOR UNKNOWN INDICATION
     Dosage: (100 MG), ORAL
     Route: 048
     Dates: start: 20071101
  5. AKINETON [Suspect]
     Indication: PRODUCT USED FOR UNKNOWN INDICATION
     Dosage: (2 MG), ORAL
     Route: 048
     Dates: start: 20050401
  6. RISPERIDONE [Suspect]
     Indication: PRODUCT USED FOR UNKNOWN INDICATION
     Dosage: (1 MG), ORAL
     Route: 048
     Dates: start: 20090301
  7. CEFUROXIME [Concomitant]
  8. TAXILAN (PERAZINE) [Suspect]
     Indication: PRODUCT USED FOR UNKNOWN INDICATION
     Dosage: (100 MG), ORAL
     Route: 048
     Dates: start: 20100901

REACTIONS (3)
  - ACUTE HEPATIC FAILURE [None]
  - RENAL FAILURE ACUTE [None]
  - THROMBOCYTOPENIA [None]
